FAERS Safety Report 19312448 (Version 5)
Quarter: 2022Q1

REPORT INFORMATION
  Report Type: Spontaneous
  Country: JP (occurrence: JP)
  Receive Date: 20210527
  Receipt Date: 20220331
  Transmission Date: 20220423
  Serious: Yes (Death, Life-Threatening, Other)
  Sender: FDA-Public Use
  Company Number: JP-JAZZ-2021-JP-009461

PATIENT
  Age: 13 Year
  Sex: Male
  Weight: 48.3 kg

DRUGS (1)
  1. DEFITELIO [Suspect]
     Active Substance: DEFIBROTIDE SODIUM
     Indication: Venoocclusive liver disease
     Dosage: 25 MILLIGRAM/KILOGRAM, QD
     Route: 042
     Dates: start: 20210512, end: 20210521

REACTIONS (4)
  - Varicella zoster virus infection [Fatal]
  - Haemophagocytic lymphohistiocytosis [Fatal]
  - Gastrointestinal haemorrhage [Not Recovered/Not Resolved]
  - Renal failure [Unknown]

NARRATIVE: CASE EVENT DATE: 20210521
